FAERS Safety Report 19413679 (Version 5)
Quarter: 2022Q1

REPORT INFORMATION
  Report Type: Report from Study
  Country: CA (occurrence: CA)
  Receive Date: 20210614
  Receipt Date: 20220209
  Transmission Date: 20220424
  Serious: Yes (Other)
  Sender: FDA-Public Use
  Company Number: CA-BAUSCH-BL-2021-008083

PATIENT

DRUGS (16)
  1. CONTRAVE [Suspect]
     Active Substance: BUPROPION HYDROCHLORIDE\NALTREXONE HYDROCHLORIDE
     Indication: Weight control
     Dosage: 90/8 MG (1 DOSAGE FORMS,1 IN 1 D)
     Route: 048
     Dates: start: 20210205, end: 20210211
  2. CONTRAVE [Suspect]
     Active Substance: BUPROPION HYDROCHLORIDE\NALTREXONE HYDROCHLORIDE
     Dosage: 90/8 MG (1 DOSAGE FORMS,1 IN 12 HR)
     Route: 048
     Dates: start: 20210212, end: 20210218
  3. CONTRAVE [Suspect]
     Active Substance: BUPROPION HYDROCHLORIDE\NALTREXONE HYDROCHLORIDE
     Dosage: 90/8 MG, TWO TABLETS IN THE MORNING AND ONE TABLET IN THE EVENING
     Route: 048
     Dates: start: 20210219, end: 20210225
  4. CONTRAVE [Suspect]
     Active Substance: BUPROPION HYDROCHLORIDE\NALTREXONE HYDROCHLORIDE
     Dosage: 90/8 MG (2 DOSAGE FORMS, 1 IN 12 HR)
     Route: 048
     Dates: start: 20210226, end: 202107
  5. ASTRAZENECA COVID-19 VACCINE [Suspect]
     Active Substance: AZD-1222
     Indication: COVID-19 prophylaxis
     Dosage: UNK
     Route: 065
     Dates: start: 20210426, end: 20210426
  6. VIT D [VITAMIN D NOS] [Concomitant]
     Indication: Vitamin D decreased
     Dosage: 50000 IU, 1 IN 6 D
     Route: 048
  7. CITALOPRAM [Concomitant]
     Active Substance: CITALOPRAM HYDROBROMIDE
     Indication: Depression
     Dosage: DAILY
     Route: 048
     Dates: end: 20210601
  8. CITALOPRAM [Concomitant]
     Active Substance: CITALOPRAM HYDROBROMIDE
     Dosage: EVERY OTHER DAY. (5 MG, 1 IN 2 D) - ONGOING FOR 2 WEEKS APPROX
     Route: 048
     Dates: start: 20210622
  9. RITALIN [Concomitant]
     Active Substance: METHYLPHENIDATE HYDROCHLORIDE
     Indication: Attention deficit hyperactivity disorder
     Dosage: 60 MG (20 MG, 1 IN 8 HR)
     Route: 048
  10. LORAZEPAM [Concomitant]
     Active Substance: LORAZEPAM
     Indication: Anxiety
     Dosage: AS NEEDED (2 MG)
     Route: 048
  11. IRON [Concomitant]
     Active Substance: IRON
     Indication: Blood iron decreased
     Dosage: 3/4 TEA SPOON AS NEEDED
     Route: 048
  12. B12                                /00056201/ [Concomitant]
     Indication: Vitamin B12 decreased
     Dosage: AS NEEDED (1000 MCG)
     Route: 048
  13. ZOLPIDEM [Concomitant]
     Active Substance: ZOLPIDEM TARTRATE
     Indication: Insomnia
     Dosage: AT BED TIME (10 MG)
     Route: 048
  14. SUVEXX [Concomitant]
     Indication: Migraine
     Dosage: 85/500 MG, AS REQUIRED, THERAPY END DATE 24/MAY/2021 (APPROX.)
     Route: 048
  15. METHYLPHENIDATE [Concomitant]
     Active Substance: METHYLPHENIDATE
     Indication: Attention deficit hyperactivity disorder
     Dosage: UNK
  16. VITAMIN C [Concomitant]
     Active Substance: ASCORBIC ACID
     Indication: Product used for unknown indication
     Dosage: UNK

REACTIONS (14)
  - Pulmonary thrombosis [Unknown]
  - Blood iron decreased [Not Recovered/Not Resolved]
  - Haemorrhage [Unknown]
  - Dyspnoea exertional [Unknown]
  - Peripheral swelling [Not Recovered/Not Resolved]
  - Dysstasia [Unknown]
  - Odynophagia [Recovering/Resolving]
  - Platelet count increased [Unknown]
  - Sleep talking [Recovering/Resolving]
  - Tremor [Recovering/Resolving]
  - Asthenia [Not Recovered/Not Resolved]
  - Abnormal dreams [Recovering/Resolving]
  - Fatigue [Not Recovered/Not Resolved]
  - Inability to afford medication [Unknown]

NARRATIVE: CASE EVENT DATE: 20210101
